FAERS Safety Report 15833638 (Version 4)
Quarter: 2020Q1

REPORT INFORMATION
  Report Type: Spontaneous
  Country: US (occurrence: US)
  Receive Date: 20190116
  Receipt Date: 20200204
  Transmission Date: 20200409
  Serious: Yes (Hospitalization)
  Sender: FDA-Public Use
  Company Number: US-PORTOLA PHARMACEUTICALS, INC.-2019US000001

PATIENT

DRUGS (11)
  1. ANDEXXA [Suspect]
     Active Substance: ANDEXANET ALFA
     Indication: PROCOAGULANT THERAPY
     Dosage: 800 MG BOLUS
     Route: 040
     Dates: start: 20181123, end: 20181123
  2. LABETALOL [Concomitant]
     Active Substance: LABETALOL\LABETALOL HYDROCHLORIDE
     Indication: HYPERTENSION
     Dosage: 10-20 MG Q4HRS PRN
     Route: 065
     Dates: start: 20181122, end: 20181218
  3. LEVETIRACETAM. [Concomitant]
     Active Substance: LEVETIRACETAM
     Dosage: 1000 MG, BID
     Route: 065
     Dates: start: 20181123, end: 20181218
  4. NOREPINEPHRINE. [Concomitant]
     Active Substance: NOREPINEPHRINE
     Dosage: 16 MG/250ML @ 2MCG/MIN
     Route: 065
     Dates: start: 20181124, end: 20181129
  5. NICARDIPINE [Concomitant]
     Active Substance: NICARDIPINE
     Dosage: 20 MG IN 200ML @5MG/HR
     Route: 065
     Dates: start: 20181123, end: 20181124
  6. DEXMEDETOMIDINE. [Concomitant]
     Active Substance: DEXMEDETOMIDINE
     Dosage: 200MCG/50ML @0.2MCG/KG/HR
     Route: 065
     Dates: start: 20181123, end: 20181124
  7. FENTANYL. [Concomitant]
     Active Substance: FENTANYL
     Dosage: 1000 MCG/100ML @12.5 MCG/HR
     Route: 065
     Dates: start: 20181123, end: 20181129
  8. ANDEXXA [Suspect]
     Active Substance: ANDEXANET ALFA
     Dosage: 960 MG INFUSION
     Route: 042
     Dates: start: 20181123, end: 20181123
  9. HYDRALAZINE [Concomitant]
     Active Substance: HYDRALAZINE HYDROCHLORIDE
     Indication: HYPERTENSION
     Dosage: 10 MG Q4HRS PRN
     Route: 065
     Dates: start: 20181122, end: 20181218
  10. APIXABAN [Concomitant]
     Active Substance: APIXABAN
     Route: 065
  11. PROPOFOL. [Concomitant]
     Active Substance: PROPOFOL
     Dosage: 1000MG/100ML @10MCG/KG/MIN
     Route: 065
     Dates: start: 20181123, end: 20181127

REACTIONS (1)
  - Carotid artery occlusion [Unknown]

NARRATIVE: CASE EVENT DATE: 20181124
